FAERS Safety Report 12124483 (Version 1)
Quarter: 2016Q1

REPORT INFORMATION
  Report Type: Spontaneous
  Country: CN (occurrence: CN)
  Receive Date: 20160229
  Receipt Date: 20160229
  Transmission Date: 20160526
  Serious: Yes (Other)
  Sender: FDA-Public Use
  Company Number: CN-ASTRAZENECA-2016SE20618

PATIENT
  Age: 23740 Day
  Sex: Male
  Weight: 72 kg

DRUGS (1)
  1. TICAGRELOR [Suspect]
     Active Substance: TICAGRELOR
     Indication: PLATELET AGGREGATION INCREASED
     Route: 048
     Dates: start: 20150514, end: 20150515

REACTIONS (2)
  - Dyspnoea [Unknown]
  - Abscess oral [Unknown]

NARRATIVE: CASE EVENT DATE: 20150514
